FAERS Safety Report 4262565-2 (Version None)
Quarter: 2004Q1

REPORT INFORMATION
  Report Type: 
  Country: None (occurrence: None)
  Receive Date: 20040102
  Receipt Date: 20030113
  Transmission Date: 20041129
  Serious: Yes (Other)
  Sender: FDA-Public Use
  Company Number: WAES 0301USA01087

PATIENT
  Sex: Male

DRUGS (1)
  1. VIOXX [Suspect]
     Route: 048
     Dates: start: 20020117, end: 20020420

REACTIONS (3)
  - CARDIOVASCULAR DISORDER [None]
  - RENAL FAILURE ACUTE [None]
  - SHOCK [None]
